FAERS Safety Report 11784656 (Version 2)
Quarter: 2015Q4

REPORT INFORMATION
  Report Type: Report from Study
  Country: US (occurrence: US)
  Receive Date: 20151130
  Receipt Date: 20151231
  Transmission Date: 20160305
  Serious: Yes (Hospitalization, Disabling)
  Sender: FDA-Public Use
  Company Number: US-ACTELION-A-NJ2015-127959

PATIENT
  Age: 34 Year
  Sex: Female

DRUGS (14)
  1. TRAZODONE HYDROCHLORIDE. [Concomitant]
     Active Substance: TRAZODONE HYDROCHLORIDE
  2. PANTOPRAZOLE SODIUM. [Concomitant]
     Active Substance: PANTOPRAZOLE SODIUM
  3. PROMETHAZINE HCL [Concomitant]
     Active Substance: PROMETHAZINE HYDROCHLORIDE
  4. AMOXICILLIN. [Concomitant]
     Active Substance: AMOXICILLIN
  5. ALPRAZOLAM. [Concomitant]
     Active Substance: ALPRAZOLAM
  6. METFORMIN HYDROCHLORIDE. [Concomitant]
     Active Substance: METFORMIN HYDROCHLORIDE
  7. LEVOFLOXACIN. [Concomitant]
     Active Substance: LEVOFLOXACIN
  8. MACITENTAN [Suspect]
     Active Substance: MACITENTAN
     Indication: PULMONARY ARTERIAL HYPERTENSION
     Dosage: 10 MG, UNK
     Route: 048
     Dates: start: 20140731
  9. ATORVASTATIN CALCIUM. [Concomitant]
     Active Substance: ATORVASTATIN CALCIUM
  10. LEVOMILNACIPRAN [Concomitant]
     Active Substance: LEVOMILNACIPRAN
     Dosage: 40 MG, UNK
  11. ONDANSETRON [Concomitant]
     Active Substance: ONDANSETRON
  12. DULOXETINE HYDROCHLORIDE. [Concomitant]
     Active Substance: DULOXETINE HYDROCHLORIDE
  13. METHOCARBAMOL. [Concomitant]
     Active Substance: METHOCARBAMOL
  14. HYDROCODONE/ACETAMINOPHEN [Concomitant]
     Active Substance: ACETAMINOPHEN\HYDROCODONE

REACTIONS (2)
  - Seizure [Recovering/Resolving]
  - Oxygen saturation decreased [Recovering/Resolving]
